FAERS Safety Report 4506679-8 (Version None)
Quarter: 2004Q4

REPORT INFORMATION
  Report Type: 
  Country: None (occurrence: None)
  Receive Date: 20041122
  Receipt Date: 20040426
  Transmission Date: 20050328
  Serious: Yes (Life-Threatening, Hospitalization)
  Sender: FDA-Public Use
  Company Number: US-MERCK-0404USA02196

PATIENT
  Age: 47 Year
  Sex: Female
  Weight: 64 kg

DRUGS (15)
  1. VIOXX [Suspect]
     Route: 048
  2. ALTACE [Suspect]
     Route: 048
  3. GEODON [Concomitant]
     Route: 048
  4. ZYPREXA [Concomitant]
     Route: 048
  5. LEXAPRO [Concomitant]
     Route: 048
  6. PROTONIX [Concomitant]
     Route: 048
  7. NEURONTIN [Concomitant]
     Route: 048
  8. CLONAZEPAM [Concomitant]
     Route: 048
  9. HYDROCODONE BITARTRATE AND ACETAMINOPHEN [Concomitant]
     Route: 048
  10. PHENERGAN TABLETS/SUPPOSITORIES [Concomitant]
     Route: 048
  11. ASPIRIN [Suspect]
     Route: 048
  12. PEG-INTRON [Suspect]
     Indication: HEPATITIS C
     Route: 058
     Dates: start: 20040212, end: 20040322
  13. REBETOL [Suspect]
     Indication: HEPATITIS C
     Route: 048
     Dates: start: 20040212, end: 20040322
  14. LITHIUM CARBONATE [Suspect]
     Indication: DEPRESSION
     Route: 065
     Dates: start: 20040309
  15. LITHIUM CARBONATE [Suspect]
     Indication: AGITATION
     Route: 065
     Dates: start: 20040309

REACTIONS (10)
  - AGITATION [None]
  - ANAEMIA [None]
  - ATAXIA [None]
  - DEPRESSION [None]
  - DRUG LEVEL INCREASED [None]
  - DRUG TOXICITY [None]
  - HAEMATOCRIT DECREASED [None]
  - JAUNDICE [None]
  - MENTAL STATUS CHANGES [None]
  - THERAPEUTIC AGENT TOXICITY [None]
